FAERS Safety Report 9818155 (Version 2)
Quarter: 2014Q1

REPORT INFORMATION
  Report Type: Spontaneous
  Country: CL (occurrence: CL)
  Receive Date: 20140115
  Receipt Date: 20140115
  Transmission Date: 20141002
  Serious: Yes (Other)
  Sender: FDA-Public Use
  Company Number: PHHY2011CL36538

PATIENT
  Age: 52 Year
  Sex: Male

DRUGS (2)
  1. PRAMIPEXOLE [Suspect]
     Indication: PARKINSON^S DISEASE
     Dosage: 3 MG, UNK
  2. PRAMIPEXOLE [Suspect]
     Dosage: 1.5 MG, UNK

REACTIONS (14)
  - Memory impairment [Recovered/Resolved]
  - Apraxia [Recovered/Resolved]
  - Aphasia [Recovered/Resolved]
  - Impulse-control disorder [Recovered/Resolved]
  - Pathological gambling [Recovered/Resolved]
  - Compulsive shopping [Recovered/Resolved]
  - Disinhibition [Recovered/Resolved]
  - Gambling [Recovered/Resolved]
  - Euphoric mood [Recovered/Resolved]
  - Adjustment disorder [Recovered/Resolved]
  - Coordination abnormal [Recovered/Resolved]
  - Eating disorder symptom [Recovered/Resolved]
  - Executive dysfunction [Recovered/Resolved]
  - Abnormal behaviour [Recovered/Resolved]
